FAERS Safety Report 5390674-3 (Version None)
Quarter: 2007Q3

REPORT INFORMATION
  Report Type: 
  Country: None (occurrence: None)
  Receive Date: 20070718
  Receipt Date: 20070712
  Transmission Date: 20080115
  Serious: Yes (Other)
  Sender: FDA-Public Use
  Company Number: GB-SHR-GB-2007-026017

PATIENT
  Sex: Male

DRUGS (2)
  1. FLUDARABINE PHOSPHATE [Suspect]
     Dosage: ONE COURSE
  2. CYCLOPHOSPHAMIDE [Suspect]
     Dosage: ONE COURSE

REACTIONS (1)
  - PETIT MAL EPILEPSY [None]
